FAERS Safety Report 16002861 (Version 1)
Quarter: 2019Q1

REPORT INFORMATION
  Report Type: Spontaneous
  Country: US (occurrence: US)
  Receive Date: 20190225
  Receipt Date: 20190225
  Transmission Date: 20190418
  Serious: No
  Sender: FDA-Public Use
  Company Number: US-SA-2019SA046937

PATIENT
  Age: 62 Year
  Sex: Male

DRUGS (2)
  1. ADMELOG [Suspect]
     Active Substance: INSULIN LISPRO
     Indication: TYPE 2 DIABETES MELLITUS
     Dosage: 20 IU, TID
     Route: 065
  2. BASALOG [Concomitant]
     Indication: TYPE 2 DIABETES MELLITUS
     Dosage: 80 IU, HS

REACTIONS (6)
  - Nervousness [Unknown]
  - Blood glucose decreased [Unknown]
  - Nausea [Unknown]
  - Dry mouth [Unknown]
  - Asthenia [Unknown]
  - Headache [Unknown]
